FAERS Safety Report 14029443 (Version 1)
Quarter: 2017Q4

REPORT INFORMATION
  Report Type: Spontaneous
  Country: US (occurrence: US)
  Receive Date: 20171002
  Receipt Date: 20171002
  Transmission Date: 20180321
  Serious: No
  Sender: FDA-Public Use
  Company Number: US-JAZZ-2017-US-011245

PATIENT
  Age: 23 Year
  Sex: Male

DRUGS (2)
  1. XYREM [Suspect]
     Active Substance: SODIUM OXYBATE
     Indication: NARCOLEPSY
     Dosage: 2.25 G, BID
     Route: 048
     Dates: start: 201708, end: 20170821
  2. XYREM [Suspect]
     Active Substance: SODIUM OXYBATE
     Dosage: 3 G, BID
     Route: 048
     Dates: start: 20170821

REACTIONS (8)
  - Condition aggravated [Unknown]
  - Abnormal behaviour [Unknown]
  - Hypopnoea [Unknown]
  - Myalgia [Unknown]
  - Arthralgia [Unknown]
  - Disorientation [Unknown]
  - Confusional state [Unknown]
  - Migraine with aura [Unknown]

NARRATIVE: CASE EVENT DATE: 201708
